FAERS Safety Report 11185858 (Version 1)
Quarter: 2015Q2

REPORT INFORMATION
  Report Type: Spontaneous
  Country: US (occurrence: US)
  Receive Date: 20150612
  Receipt Date: 20150612
  Transmission Date: 20150821
  Serious: No
  Sender: FDA-Public Use
  Company Number: US-GLAXOSMITHKLINE-US2015080354

PATIENT

DRUGS (1)
  1. WALGREENS NICOTINE TRANSDERMAL SYSTEM PATCH CLEAR, 7MG TRANSDERMAL PAT [Suspect]
     Active Substance: NICOTINE
     Indication: SMOKING CESSATION THERAPY
     Dosage: 7 MG, UNK

REACTIONS (1)
  - Drug ineffective [Unknown]
